FAERS Safety Report 18822018 (Version 1)
Quarter: 2021Q1

REPORT INFORMATION
  Report Type: Spontaneous
  Country: US (occurrence: US)
  Receive Date: 20210202
  Receipt Date: 20210202
  Transmission Date: 20210419
  Serious: No
  Sender: FDA-Public Use
  Company Number: US-PFIZER INC-2021011416

PATIENT
  Age: 71 Year
  Sex: Female
  Weight: 76.2 kg

DRUGS (1)
  1. IBRANCE [Suspect]
     Active Substance: PALBOCICLIB
     Indication: LIPOSARCOMA
     Dosage: 125 MG, CYCLIC (DAILY FOR 21 DAYS ON AND 7 DAYS OFF)
     Route: 048
     Dates: start: 20201209

REACTIONS (4)
  - Scab [Unknown]
  - Off label use [Unknown]
  - Wound haemorrhage [Unknown]
  - Rhinorrhoea [Unknown]
